FAERS Safety Report 24124530 (Version 1)
Quarter: 2024Q3

REPORT INFORMATION
  Report Type: Spontaneous
  Country: ZA (occurrence: None)
  Receive Date: 20240723
  Receipt Date: 20240723
  Transmission Date: 20241016
  Serious: Yes (Death, Other)
  Sender: ASTRAZENECA
  Company Number: 2024A164324

PATIENT
  Age: 66 Year
  Sex: Male

DRUGS (7)
  1. BUDESONIDE\FORMOTEROL [Suspect]
     Active Substance: BUDESONIDE\FORMOTEROL
     Indication: Asthma
     Dosage: 60 MG, UNKNOWN UNKNOWN
     Route: 055
  2. IPRABUT [Concomitant]
     Indication: Asthma
     Route: 048
  3. BUDESONIDE [Concomitant]
     Active Substance: BUDESONIDE
     Indication: Rhinitis allergic
     Dosage: 0.5MG UNKNOWN
     Route: 055
  4. FLUTICASONE PROPIONATE\SALMETEROL XINAFOATE [Concomitant]
     Active Substance: FLUTICASONE PROPIONATE\SALMETEROL XINAFOATE
     Indication: Asthma
     Dosage: 60 DOSE 50/250 MCG60.0MG UNKNOWN
     Route: 055
  5. PANTOCID [Concomitant]
     Indication: Ulcer
     Dosage: 40.0MG UNKNOWN
     Route: 048
  6. ADCO-CONTROMET [Concomitant]
     Dosage: 10.0MG UNKNOWN
     Route: 048
  7. CIFRAN [Concomitant]
     Dosage: 500.0MG UNKNOWN
     Route: 048

REACTIONS (2)
  - Pancreatic carcinoma [Fatal]
  - Respiratory failure [Fatal]
